FAERS Safety Report 6756737-2 (Version None)
Quarter: 2010Q2

REPORT INFORMATION
  Report Type: 
  Country: None (occurrence: None)
  Receive Date: 20100603
  Receipt Date: 20100603
  Transmission Date: 20101027
  Serious: Yes (Other)
  Sender: FDA-Public Use
  Company Number: None

PATIENT
  Sex: Female
  Weight: 47.6277 kg

DRUGS (1)
  1. MIRENA [Suspect]
     Indication: CONTRACEPTION
     Dates: start: 20100419, end: 20100601

REACTIONS (12)
  - ABDOMINAL PAIN [None]
  - APATHY [None]
  - DRUG EXPOSURE VIA BREAST MILK [None]
  - DYSPAREUNIA [None]
  - FATIGUE [None]
  - FEELING ABNORMAL [None]
  - LIBIDO DECREASED [None]
  - MOOD SWINGS [None]
  - SENSORY DISTURBANCE [None]
  - SUPPRESSED LACTATION [None]
  - UTERINE PAIN [None]
  - VAGINAL HAEMORRHAGE [None]
